FAERS Safety Report 22805633 (Version 3)
Quarter: 2023Q4

REPORT INFORMATION
  Report Type: Report from Study
  Country: CN (occurrence: CN)
  Receive Date: 20230809
  Receipt Date: 20231006
  Transmission Date: 20240110
  Serious: Yes (Hospitalization)
  Sender: FDA-Public Use
  Company Number: CN-PFIZER INC-PV202300133325

PATIENT
  Age: 68 Year
  Sex: Female
  Weight: 50 kg

DRUGS (3)
  1. AXITINIB [Suspect]
     Active Substance: AXITINIB
     Indication: Renal cancer
     Dosage: 5 MG, 2X/DAY
     Route: 048
     Dates: start: 20230519
  2. AXITINIB [Suspect]
     Active Substance: AXITINIB
     Dosage: 5 MG, SINGLE
     Route: 048
     Dates: start: 20230722, end: 20230722
  3. ESSENTIALE N [POLYENE PHOSPHATIDYLCHOLINE] [Concomitant]
     Dosage: UNK
     Dates: start: 20230722, end: 20230726

REACTIONS (1)
  - Complicated appendicitis [Recovered/Resolved]

NARRATIVE: CASE EVENT DATE: 20230725
